FAERS Safety Report 4722499-3 (Version None)
Quarter: 2005Q3

REPORT INFORMATION
  Report Type: 
  Country: None (occurrence: None)
  Receive Date: 20050722
  Receipt Date: 20050519
  Transmission Date: 20060218
  Serious: No
  Sender: FDA-Public Use
  Company Number: US-GLAXOSMITHKLINE-A0559341A

PATIENT
  Sex: Male

DRUGS (5)
  1. AVANDIA [Suspect]
     Dosage: 1MG TWICE PER DAY
     Route: 048
     Dates: start: 20050419
  2. METFORMIN [Concomitant]
  3. LIPITOR [Concomitant]
  4. TRICOR [Concomitant]
  5. LEVAQUIN [Concomitant]

REACTIONS (3)
  - DIABETES MELLITUS INADEQUATE CONTROL [None]
  - DYSPEPSIA [None]
  - FLATULENCE [None]
